FAERS Safety Report 17667848 (Version 4)
Quarter: 2020Q2

REPORT INFORMATION
  Report Type: Spontaneous
  Country: ES (occurrence: ES)
  Receive Date: 20200414
  Receipt Date: 20200610
  Transmission Date: 20200713
  Serious: Yes (Hospitalization)
  Sender: FDA-Public Use
  Company Number: ES-PFIZER INC-2020148977

PATIENT
  Age: 46 Year
  Sex: Female
  Weight: 63.6 kg

DRUGS (18)
  1. ROBAXIN [Suspect]
     Active Substance: METHOCARBAMOL
     Indication: MUSCLE SPASMS
     Dosage: TAKEN ON CERTAIN OCCASIONS
     Route: 065
     Dates: start: 20191122
  2. PARACETAMOL [Suspect]
     Active Substance: ACETAMINOPHEN
     Indication: PYREXIA
     Dosage: 1 G, 3X/DAY (SEVERAL DAYS)
     Route: 065
     Dates: start: 20200128
  3. CHLORPHENAMINE MALEATE [Suspect]
     Active Substance: CHLORPHENIRAMINE MALEATE
     Dosage: UNK
     Dates: start: 20200128
  4. CARDURAN NEO [Suspect]
     Active Substance: DOXAZOSIN MESYLATE
     Indication: HYPERTENSION
     Dosage: UNK
     Dates: start: 20180706
  5. JINARC [Suspect]
     Active Substance: TOLVAPTAN
     Indication: CONGENITAL CYSTIC KIDNEY DISEASE
     Dosage: 120 MG, 1X/DAY
     Route: 065
     Dates: start: 201903, end: 20200115
  6. ESOMEPRAZOLE MAGNESIUM. [Suspect]
     Active Substance: ESOMEPRAZOLE MAGNESIUM
     Indication: OESOPHAGITIS
     Dosage: SPORADICALLY TAKEN, ALTHOUGH IT WAS TAKEN IN THE LAST 48 H
     Dates: start: 20191216
  7. EBASTINE [Suspect]
     Active Substance: EBASTINE
     Dosage: UNK
     Dates: start: 20191216
  8. METAMIZOLE [Suspect]
     Active Substance: METAMIZOLE
     Indication: PYREXIA
     Dosage: UNK
     Route: 030
  9. MAXALT [Suspect]
     Active Substance: RIZATRIPTAN BENZOATE
     Dosage: RARELY TAKEN
     Route: 065
     Dates: start: 20180706
  10. REDOXON C [Suspect]
     Active Substance: ASCORBIC ACID
     Dosage: UNK (FOR 1 DAY)
     Dates: start: 20200128
  11. METAMIZOLE [Suspect]
     Active Substance: METAMIZOLE
     Indication: ABDOMINAL PAIN UPPER
  12. FORTASEC [LOPERAMIDE HYDROCHLORIDE] [Suspect]
     Active Substance: LOPERAMIDE HYDROCHLORIDE
     Indication: DIARRHOEA
     Dosage: UNK
     Dates: start: 20200128
  13. TRAMADOL. [Suspect]
     Active Substance: TRAMADOL
     Indication: INFLUENZA
     Dosage: UNK
     Dates: start: 201912
  14. JINARC [Suspect]
     Active Substance: TOLVAPTAN
     Dosage: UNK
     Route: 065
  15. PARACETAMOL [Suspect]
     Active Substance: ACETAMINOPHEN
     Indication: ABDOMINAL PAIN UPPER
  16. IXIA [Suspect]
     Active Substance: OLMESARTAN MEDOXOMIL
     Dosage: UNK
     Dates: start: 20190114
  17. PARACETAMOL [Suspect]
     Active Substance: ACETAMINOPHEN
     Indication: INFLUENZA
     Dosage: UNK
     Route: 065
     Dates: start: 201912
  18. EBASTINE [Suspect]
     Active Substance: EBASTINE
     Indication: INFLUENZA
     Dosage: UNK
     Route: 065
     Dates: start: 20200210

REACTIONS (13)
  - Oesophagitis [Recovered/Resolved]
  - Influenza [Recovered/Resolved]
  - Vomiting [Recovered/Resolved]
  - Diarrhoea [Recovered/Resolved]
  - Rhinorrhoea [Recovered/Resolved]
  - Cough [Recovered/Resolved]
  - Pyrexia [Recovered/Resolved]
  - Alanine aminotransferase increased [Recovered/Resolved]
  - Gallbladder polyp [Unknown]
  - Aspartate aminotransferase increased [Recovered/Resolved]
  - Abdominal pain upper [Recovered/Resolved]
  - Liver disorder [Recovered/Resolved]
  - Muscle spasms [Recovered/Resolved]

NARRATIVE: CASE EVENT DATE: 20191122
